FAERS Safety Report 7716194-6 (Version None)
Quarter: 2011Q3

REPORT INFORMATION
  Report Type: 
  Country: None (occurrence: None)
  Receive Date: 20110829
  Receipt Date: 20090508
  Transmission Date: 20111222
  Serious: Yes (Hospitalization, Other)
  Sender: FDA-Public Use
  Company Number: PHHY2009TW60826

PATIENT
  Sex: Female

DRUGS (1)
  1. GLEEVEC [Suspect]
     Indication: GASTROINTESTINAL STROMAL TUMOUR
     Dosage: 600 MG, UNK
     Route: 048
     Dates: start: 20060615

REACTIONS (11)
  - SWELLING [None]
  - QUALITY OF LIFE DECREASED [None]
  - PAIN [None]
  - DISCOMFORT [None]
  - ABDOMINAL PAIN [None]
  - POSTOPERATIVE WOUND INFECTION [None]
  - DIARRHOEA [None]
  - POSTOPERATIVE WOUND COMPLICATION [None]
  - WOUND COMPLICATION [None]
  - DEPRESSION [None]
  - NASOPHARYNGITIS [None]
